FAERS Safety Report 8073167-4 (Version None)
Quarter: 2012Q1

REPORT INFORMATION
  Report Type: 
  Country: None (occurrence: None)
  Receive Date: 20120126
  Receipt Date: 20120113
  Transmission Date: 20120608
  Serious: Yes (Hospitalization)
  Sender: FDA-Public Use
  Company Number: FR-ELI_LILLY_AND_COMPANY-FR201107006525

PATIENT
  Age: 51 Year
  Sex: Female
  Weight: 71 kg

DRUGS (14)
  1. DUPHALAC [Concomitant]
     Indication: MIXED CONNECTIVE TISSUE DISEASE
     Dosage: 2 DF, QD
     Route: 048
     Dates: start: 20090101
  2. NADOLOL [Concomitant]
     Indication: MIXED CONNECTIVE TISSUE DISEASE
     Dosage: 60 MG, QD
     Route: 048
  3. FORTEO [Suspect]
     Dosage: 20 UG, QD
     Route: 058
     Dates: start: 20110906
  4. METHOTREXATE [Concomitant]
     Indication: MIXED CONNECTIVE TISSUE DISEASE
     Dosage: 10 MG, EACH EVENING
     Route: 048
     Dates: start: 20110201, end: 20110701
  5. SPASFON [Concomitant]
     Indication: MIXED CONNECTIVE TISSUE DISEASE
     Dosage: UNK
     Route: 048
     Dates: start: 20100101
  6. OXYCONTIN [Concomitant]
     Indication: MIXED CONNECTIVE TISSUE DISEASE
     Dosage: 20 MG, QD
     Route: 048
     Dates: start: 20110601, end: 20110819
  7. LANSOYL [Concomitant]
     Indication: MIXED CONNECTIVE TISSUE DISEASE
     Dosage: 40 MG, QD
     Route: 048
     Dates: start: 20100101
  8. ACETAMINOPHEN [Concomitant]
     Indication: MIXED CONNECTIVE TISSUE DISEASE
     Dosage: 3 DF, QD
     Route: 048
     Dates: start: 20090101
  9. NOCTAMIDE [Concomitant]
     Indication: MIXED CONNECTIVE TISSUE DISEASE
     Dosage: 1 DF, QD
     Route: 048
     Dates: start: 20090101
  10. CORTANCYL [Concomitant]
     Indication: MIXED CONNECTIVE TISSUE DISEASE
     Dosage: 7 MG, QD
     Route: 048
     Dates: start: 20100901
  11. POTASSIUM CHLORIDE [Concomitant]
     Indication: MIXED CONNECTIVE TISSUE DISEASE
     Dosage: UNK
     Route: 048
     Dates: start: 20100101
  12. PRIMPERAN TAB [Concomitant]
     Indication: MIXED CONNECTIVE TISSUE DISEASE
     Dosage: 3 DF, QD
     Route: 048
     Dates: start: 20110601
  13. PANTOPRAZOLE [Concomitant]
     Indication: MIXED CONNECTIVE TISSUE DISEASE
     Dosage: 40 MG, QD
     Route: 048
     Dates: start: 20100101
  14. FORTEO [Suspect]
     Indication: OSTEOPOROSIS
     Dosage: 20 UG, QD
     Route: 058
     Dates: start: 20110624, end: 20110830

REACTIONS (2)
  - HEPATITIS CHOLESTATIC [None]
  - PAIN IN EXTREMITY [None]
